FAERS Safety Report 10210042 (Version 3)
Quarter: 2020Q1

REPORT INFORMATION
  Report Type: Spontaneous
  Country: US (occurrence: US)
  Receive Date: 20140602
  Receipt Date: 20200106
  Transmission Date: 20200409
  Serious: Yes (Other)
  Sender: FDA-Public Use
  Company Number: US-SA-2014SA069502

PATIENT
  Sex: Male

DRUGS (2)
  1. CEREZYME [Suspect]
     Active Substance: IMIGLUCERASE
     Indication: GAUCHER^S DISEASE
     Dosage: 3600 DF,QOW
     Route: 042
     Dates: start: 19991105
  2. CEREZYME [Suspect]
     Active Substance: IMIGLUCERASE
     Dosage: 3600 DF,QOW
     Route: 041
     Dates: start: 20141215

REACTIONS (5)
  - Device malfunction [Unknown]
  - Pain [Unknown]
  - Spinal stenosis [Unknown]
  - Back disorder [Unknown]
  - Dyspnoea [Unknown]
